FAERS Safety Report 11012342 (Version 1)
Quarter: 2015Q2

REPORT INFORMATION
  Report Type: Spontaneous
  Country: US (occurrence: None)
  Receive Date: 20150407
  Receipt Date: 20150407
  Transmission Date: 20150821
  Serious: Yes (Hospitalization, Other)
  Sender: FDA-Public Use
  Company Number: LH201400271

PATIENT
  Age: 27 Year
  Sex: Female

DRUGS (12)
  1. RETINOL PALMITATE [Concomitant]
  2. CALCIUM PANNTOTHENATE [Concomitant]
  3. CALCIUM [Concomitant]
     Active Substance: CALCIUM
  4. ERGOCALCIFEROL. [Concomitant]
     Active Substance: ERGOCALCIFEROL
  5. RIBOFLAVIN [Concomitant]
     Active Substance: RIBOFLAVIN
  6. ZANTAC [Concomitant]
     Active Substance: RANITIDINE HYDROCHLORIDE
  7. THIAMIN MONONITRATE [Concomitant]
  8. PRENATAL VITAMINS (ASCORBIC ACID, CALCIUM PANTOTHENATE, CYANOCOBALAMIN, ERGOCALCIFEROL, NICOTINAMIDE, PYRIDOXINE HYDROCHLORIDE, RETINOL PALMITATE, RIBOFLAVIN, THIAMINE MONONITRATE) [Concomitant]
  9. PYRIDOXIN HYDROCHLORIDE [Concomitant]
  10. MAKENA [Suspect]
     Active Substance: HYDROXYPROGESTERONE CAPROATE
     Indication: PREMATURE LABOUR
     Route: 030
     Dates: start: 201408, end: 20140912
  11. CYANOCOBALAMIN. [Concomitant]
     Active Substance: CYANOCOBALAMIN
  12. NICOTANAMID [Concomitant]

REACTIONS (4)
  - Malaise [None]
  - Premature delivery [None]
  - Off label use [None]
  - Premature labour [None]

NARRATIVE: CASE EVENT DATE: 201408
